FAERS Safety Report 4718015-2 (Version None)
Quarter: 2005Q3

REPORT INFORMATION
  Report Type: 
  Country: None (occurrence: None)
  Receive Date: 20050718
  Receipt Date: 20050216
  Transmission Date: 20060218
  Serious: No
  Sender: FDA-Public Use
  Company Number: 2005000364

PATIENT
  Age: 51 Year
  Sex: Female

DRUGS (3)
  1. TARCEVA [Suspect]
     Indication: NON-SMALL CELL LUNG CANCER
     Dosage: 150 MG (QD), ORAL
     Route: 048
     Dates: start: 20050124
  2. SERTRALINE HCL [Concomitant]
  3. MULTIVITAMIN [Concomitant]

REACTIONS (1)
  - ALOPECIA [None]
